FAERS Safety Report 4489490-6 (Version None)
Quarter: 2004Q4

REPORT INFORMATION
  Report Type: 
  Country: None (occurrence: None)
  Receive Date: 20041101
  Receipt Date: 20041025
  Transmission Date: 20050328
  Serious: Yes (Hospitalization, Other)
  Sender: FDA-Public Use
  Company Number: 200418205US

PATIENT
  Age: 56 Year
  Sex: Female

DRUGS (4)
  1. LOVENOX [Suspect]
     Indication: FACTOR VIII DEFICIENCY
     Dosage: DOSE: 160-200
  2. HEPARIN [Concomitant]
     Dosage: DOSE: UNKNOWN
  3. ALBUTEROL [Concomitant]
     Indication: ASTHMA
     Dosage: DOSE: UNKNOWN
  4. OXYGEN [Concomitant]
     Dosage: DOSE: NOT PROVIDED

REACTIONS (3)
  - BLOOD DISORDER [None]
  - CEREBRAL HAEMORRHAGE [None]
  - TRANSIENT ISCHAEMIC ATTACK [None]
